FAERS Safety Report 16915486 (Version 1)
Quarter: 2019Q4

REPORT INFORMATION
  Report Type: Spontaneous
  Country: GB (occurrence: GB)
  Receive Date: 20191014
  Receipt Date: 20191014
  Transmission Date: 20200122
  Serious: Yes (Disabling)
  Sender: FDA-Public Use
  Company Number: GB-MYLANLABS-2019M1096346

PATIENT
  Age: 52 Year
  Sex: Female
  Weight: 114 kg

DRUGS (13)
  1. ZOPICLONE [Concomitant]
     Active Substance: ZOPICLONE
     Dosage: TAKE HALF TO ONE AT NIGHT.
     Dates: start: 20181112
  2. OMEPRAZOLE. [Concomitant]
     Active Substance: OMEPRAZOLE
     Dosage: 2 DOSAGE FORM, QD
     Dates: start: 20181112, end: 20190409
  3. CANDESARTAN. [Suspect]
     Active Substance: CANDESARTAN
     Indication: PRODUCT USED FOR UNKNOWN INDICATION
     Dosage: 4 MILLIGRAM
  4. SERTRALINE [Concomitant]
     Active Substance: SERTRALINE HYDROCHLORIDE
     Dosage: 1 DOSAGE FORM, QD
     Dates: start: 20181112
  5. WARFARIN SODIUM. [Concomitant]
     Active Substance: WARFARIN SODIUM
     Dosage: TAKE AS INSTRUCTED BY THE WARFARIN CLINIC
     Dates: start: 20181112
  6. AMITRIPTYLINE HYDROCHLORIDE. [Concomitant]
     Active Substance: AMITRIPTYLINE HYDROCHLORIDE
     Dosage: AFTER EVENING MEAL
     Dates: start: 20181112
  7. VICTOZA [Concomitant]
     Active Substance: LIRAGLUTIDE
     Dosage: USE AS DIRECTED
     Dates: start: 20190201
  8. BISOPROLOL [Concomitant]
     Active Substance: BISOPROLOL
     Dosage: AT NIGHT AS DIRECTED BY HOSPITAL
     Dates: start: 20190201
  9. LANSOPRAZOLE. [Concomitant]
     Active Substance: LANSOPRAZOLE
     Dosage: IN THE MORNING AND EVENING
     Dates: start: 20190409
  10. COCODAMOL [Concomitant]
     Active Substance: ACETAMINOPHEN\CODEINE PHOSPHATE
     Dosage: TAKE 1 OR 2 UP TO 4 TIMES, PRN
     Dates: start: 20181112
  11. RAMIPRIL. [Concomitant]
     Active Substance: RAMIPRIL
     Dosage: AT NIGHT AS DIRECTED BY HOSPITAL
     Dates: start: 20190201
  12. HUMULIN L [Concomitant]
     Active Substance: INSULIN HUMAN
     Dosage: USE AS DIRECTED
     Dates: start: 20181112
  13. ATORVASTATIN [Concomitant]
     Active Substance: ATORVASTATIN
     Dosage: IN THE EVENING
     Dates: start: 20181112

REACTIONS (3)
  - Dysarthria [Recovered/Resolved]
  - Fatigue [Recovered/Resolved]
  - Hallucination, visual [Recovered/Resolved]
